FAERS Safety Report 5211682-9 (Version None)
Quarter: 2007Q1

REPORT INFORMATION
  Report Type: 
  Country: None (occurrence: None)
  Receive Date: 20070117
  Receipt Date: 20070117
  Transmission Date: 20070707
  Serious: Yes (Other)
  Sender: FDA-Public Use
  Company Number: None

PATIENT
  Age: 3 Year
  Sex: Male
  Weight: 16.3295 kg

DRUGS (2)
  1. ACYCLOVIR [Suspect]
     Indication: VIRAL INFECTION
     Dosage: 400 MG  TID   PO   (DURATION: ONE DAY =  3 DOSES)
     Route: 048
  2. ACYCLOVIR [Concomitant]

REACTIONS (4)
  - CONVULSION [None]
  - DEPRESSED LEVEL OF CONSCIOUSNESS [None]
  - LETHARGY [None]
  - POSTICTAL STATE [None]
